FAERS Safety Report 9320108 (Version 1)
Quarter: 2013Q2

REPORT INFORMATION
  Report Type: Report from Study
  Country: FR (occurrence: FR)
  Receive Date: 20130530
  Receipt Date: 20130530
  Transmission Date: 20140414
  Serious: Yes (Death, Other)
  Sender: FDA-Public Use
  Company Number: FR-BAXTER-2013BAX019925

PATIENT
  Age: 23 Year
  Sex: 0

DRUGS (4)
  1. MITOXANTRONE [Suspect]
     Indication: NEUROMYELITIS OPTICA
  2. ENDOXAN 2000 MG, LYOPHILISAT POUR SOLUTION INJECTABLE [Suspect]
     Indication: NEUROMYELITIS OPTICA
  3. METHYLPREDNISOLONE [Suspect]
     Indication: NEUROMYELITIS OPTICA
  4. RITUXIMAB [Suspect]
     Indication: NEUROMYELITIS OPTICA

REACTIONS (2)
  - Sepsis [Fatal]
  - Acute myeloid leukaemia [Unknown]
